FAERS Safety Report 12972131 (Version 1)
Quarter: 2016Q4

REPORT INFORMATION
  Report Type: Spontaneous
  Country: FR (occurrence: FR)
  Receive Date: 20161124
  Receipt Date: 20161124
  Transmission Date: 20170207
  Serious: Yes (Hospitalization)
  Sender: FDA-Public Use
  Company Number: FR-ASTRAZENECA-2016SF23019

PATIENT
  Age: 24959 Day
  Sex: Female

DRUGS (6)
  1. ORACILLINE [Concomitant]
     Active Substance: PENICILLIN V
  2. LYNPARZA [Suspect]
     Active Substance: OLAPARIB
     Indication: OVARIAN EPITHELIAL CANCER
     Route: 048
     Dates: start: 201605
  3. AMLOR [Concomitant]
     Active Substance: AMLODIPINE BESYLATE
  4. ESOMEPRAZOLE [Concomitant]
     Active Substance: ESOMEPRAZOLE
  5. PREVISCAN [Concomitant]
     Active Substance: FLUINDIONE
  6. FLECAINE [Concomitant]
     Active Substance: FLECAINIDE

REACTIONS (2)
  - Dyspnoea exertional [Recovered/Resolved]
  - Anaemia [Recovering/Resolving]

NARRATIVE: CASE EVENT DATE: 20160811
